FAERS Safety Report 7536057-9 (Version None)
Quarter: 2011Q2

REPORT INFORMATION
  Report Type: 
  Country: None (occurrence: None)
  Receive Date: 20110609
  Receipt Date: 20110113
  Transmission Date: 20111010
  Serious: Yes (Hospitalization)
  Sender: FDA-Public Use
  Company Number: ES-SANOFI-AVENTIS-2011SA002220

PATIENT
  Age: 86 Year
  Sex: Female

DRUGS (4)
  1. FUROSEMIDE [Suspect]
     Route: 048
     Dates: start: 20100809, end: 20100827
  2. FUROSEMIDE [Suspect]
     Route: 042
     Dates: start: 20100827, end: 20100830
  3. FUROSEMIDE [Suspect]
     Route: 048
     Dates: start: 20100831, end: 20100902
  4. FUROSEMIDE [Suspect]
     Route: 042
     Dates: start: 20100830, end: 20100831

REACTIONS (3)
  - NAUSEA [None]
  - ASTHENIA [None]
  - HYPONATRAEMIA [None]
